FAERS Safety Report 5721329-0 (Version None)
Quarter: 2008Q2

REPORT INFORMATION
  Report Type: 
  Country: None (occurrence: None)
  Receive Date: 20080428
  Receipt Date: 20080428
  Transmission Date: 20081010
  Serious: Yes (Hospitalization)
  Sender: FDA-Public Use
  Company Number: None

PATIENT
  Age: 51 Year
  Sex: Female

DRUGS (1)
  1. NAPROXEN [Suspect]
     Indication: BACK PAIN
     Dosage: 500MG BID PO
     Route: 048

REACTIONS (5)
  - ANAEMIA [None]
  - GASTRIC ULCER [None]
  - MELAENA [None]
  - PRESYNCOPE [None]
  - TACHYCARDIA [None]
